FAERS Safety Report 10088030 (Version 2)
Quarter: 2014Q3

REPORT INFORMATION
  Report Type: Spontaneous
  Country: PL (occurrence: PL)
  Receive Date: 20140420
  Receipt Date: 20140707
  Transmission Date: 20150326
  Serious: No
  Sender: FDA-Public Use
  Company Number: PL-009507513-1404POL010074

PATIENT

DRUGS (2)
  1. ASAMAX [Concomitant]
     Indication: COLITIS ULCERATIVE
     Dosage: FREQUENCY-2X2 TABLETS,DAILY DOSAGE-2000MG,
     Route: 064
  2. NUVARING [Suspect]
     Active Substance: ETHINYL ESTRADIOL\ETONOGESTREL
     Indication: CONTRACEPTION
     Dosage: ONE RING FOR 21 DAYS
     Route: 064
     Dates: start: 201306, end: 201311

REACTIONS (1)
  - Pregnancy [None]
